FAERS Safety Report 20901064 (Version 7)
Quarter: 2022Q4

REPORT INFORMATION
  Report Type: Report from Study
  Country: US (occurrence: US)
  Receive Date: 20220601
  Receipt Date: 20221105
  Transmission Date: 20230113
  Serious: Yes (Hospitalization)
  Sender: FDA-Public Use
  Company Number: US-NOVARTISTESTPH-NVSC2022US125575

PATIENT
  Age: 87 Year
  Sex: Male
  Weight: 104.3 kg

DRUGS (1)
  1. ENTRESTO [Suspect]
     Active Substance: SACUBITRIL\VALSARTAN
     Indication: Product used for unknown indication
     Dosage: 1 DOSAGE FORM, BID (49/51MG)
     Route: 048
     Dates: start: 2017

REACTIONS (11)
  - Epistaxis [Unknown]
  - Fluid retention [Unknown]
  - Weight increased [Unknown]
  - Peripheral swelling [Unknown]
  - Asthma [Unknown]
  - Dyspnoea [Recovering/Resolving]
  - Oxygen consumption decreased [Unknown]
  - Weight decreased [Unknown]
  - Thinking abnormal [Unknown]
  - Renal function test abnormal [Unknown]
  - Cough [Unknown]

NARRATIVE: CASE EVENT DATE: 20211201
